FAERS Safety Report 8886787 (Version 3)
Quarter: 2013Q1

REPORT INFORMATION
  Report Type: Spontaneous
  Country: US (occurrence: US)
  Receive Date: 20121105
  Receipt Date: 20130328
  Transmission Date: 20140127
  Serious: Yes (Hospitalization, Other)
  Sender: FDA-Public Use
  Company Number: US-GILEAD-2012-0064041

PATIENT
  Sex: Male

DRUGS (1)
  1. LETAIRIS [Suspect]
     Indication: ISCHAEMIC ULCER
     Dosage: 10 MG, QD
     Route: 048
     Dates: start: 20121008

REACTIONS (5)
  - Carotid artery occlusion [Unknown]
  - Finger amputation [Unknown]
  - Fatigue [Unknown]
  - Neuralgia [Unknown]
  - Carotid artery disease [Unknown]
